FAERS Safety Report 7271229-2 (Version None)
Quarter: 2011Q1

REPORT INFORMATION
  Report Type: 
  Country: None (occurrence: None)
  Receive Date: 20110202
  Receipt Date: 20110120
  Transmission Date: 20110831
  Serious: Yes (Other)
  Sender: FDA-Public Use
  Company Number: US-SANOFI-AVENTIS-2011SA004766

PATIENT
  Age: 75 Year
  Sex: Male

DRUGS (8)
  1. PLAVIX [Suspect]
     Route: 048
     Dates: start: 20101201
  2. METOPROLOL [Concomitant]
  3. QUINAPRIL [Concomitant]
  4. PLAVIX [Suspect]
     Route: 048
     Dates: start: 20050101, end: 20101201
  5. EYE DROPS [Concomitant]
     Route: 061
  6. ASPIRIN [Concomitant]
  7. SIMVASTATIN [Concomitant]
  8. ACCUPRIL [Concomitant]

REACTIONS (5)
  - SCAB [None]
  - SKIN CANCER [None]
  - CATARACT [None]
  - SKIN HAEMORRHAGE [None]
  - EPISTAXIS [None]
